FAERS Safety Report 8031258-8 (Version None)
Quarter: 2012Q1

REPORT INFORMATION
  Report Type: 
  Country: None (occurrence: None)
  Receive Date: 20120109
  Receipt Date: 20120105
  Transmission Date: 20120608
  Serious: Yes (Hospitalization, Disabling)
  Sender: FDA-Public Use
  Company Number: US-MERCK-1107USA02914

PATIENT
  Age: 49 Year
  Sex: Female
  Weight: 48 kg

DRUGS (4)
  1. FOSAMAX PLUS D [Suspect]
     Indication: OSTEOPENIA
     Route: 048
     Dates: start: 20070331, end: 20100324
  2. FOSAMAX [Suspect]
     Indication: OSTEOPENIA
     Route: 048
     Dates: start: 19950101, end: 20100301
  3. FOSAMAX [Suspect]
     Route: 048
     Dates: start: 20070104, end: 20070330
  4. BONIVA [Suspect]
     Indication: OSTEOPENIA
     Route: 048
     Dates: start: 20100325, end: 20100428

REACTIONS (14)
  - PAIN OF SKIN [None]
  - ARTHRALGIA [None]
  - FALL [None]
  - BREAST DISORDER [None]
  - GASTROINTESTINAL DISORDER [None]
  - ROTATOR CUFF SYNDROME [None]
  - FEMUR FRACTURE [None]
  - BUNION [None]
  - CARPAL TUNNEL SYNDROME [None]
  - SKELETAL INJURY [None]
  - VITAMIN D DEFICIENCY [None]
  - MALABSORPTION [None]
  - OSTEOPOROSIS [None]
  - BLOOD CHOLESTEROL INCREASED [None]
